FAERS Safety Report 4758455-9 (Version None)
Quarter: 2005Q3

REPORT INFORMATION
  Report Type: 
  Country: None (occurrence: None)
  Receive Date: 20050901
  Receipt Date: 20020502
  Transmission Date: 20060218
  Serious: Yes (Hospitalization)
  Sender: FDA-Public Use
  Company Number: FR-BOEHRINGER INGELHEIM PHARMACEUTICALS, INC.-2002-FF-00294FF

PATIENT
  Sex: Male

DRUGS (6)
  1. VIRAMUNE [Suspect]
     Indication: HIV INFECTION
     Route: 015
     Dates: start: 20000124, end: 20000124
  2. VIRAMUNE [Suspect]
     Route: 048
     Dates: start: 20000126, end: 20000126
  3. RETROVIR [Suspect]
     Indication: VERTICAL INFECTION TRANSMISSION
     Route: 015
     Dates: start: 20000124, end: 20000124
  4. RETROVIR [Suspect]
     Route: 048
  5. COMBIVIR [Suspect]
     Indication: HIV INFECTION
     Route: 015
     Dates: end: 20000124
  6. VIRACEPT [Suspect]
     Indication: HIV INFECTION
     Route: 015
     Dates: end: 20000124

REACTIONS (4)
  - DEVELOPMENTAL DELAY [None]
  - DRUG EXPOSURE DURING PREGNANCY [None]
  - HYPERTRIGLYCERIDAEMIA [None]
  - SPEECH DISORDER DEVELOPMENTAL [None]
